FAERS Safety Report 24206771 (Version 2)
Quarter: 2024Q3

REPORT INFORMATION
  Report Type: Spontaneous
  Country: JP (occurrence: JP)
  Receive Date: 20240813
  Receipt Date: 20240918
  Transmission Date: 20241016
  Serious: Yes (Death, Other)
  Sender: JAZZ
  Company Number: JP-JAZZ PHARMACEUTICALS-2024-JP-011579

PATIENT
  Sex: Female

DRUGS (2)
  1. VYXEOS [Suspect]
     Active Substance: CYTARABINE\DAUNORUBICIN
     Indication: Acute myeloid leukaemia
     Dosage: 65 UNITS/M2, DAILY
     Route: 042
     Dates: start: 20240719, end: 20240721
  2. VYXEOS [Suspect]
     Active Substance: CYTARABINE\DAUNORUBICIN
     Dosage: UNK
     Dates: start: 20240826, end: 20240826

REACTIONS (2)
  - Acute myeloid leukaemia [Fatal]
  - Psoriasis [Recovering/Resolving]

NARRATIVE: CASE EVENT DATE: 20240721
